FAERS Safety Report 9201232 (Version 1)
Quarter: 2013Q1

REPORT INFORMATION
  Report Type: Spontaneous
  Country: US (occurrence: None)
  Receive Date: 20130327
  Receipt Date: 20130327
  Transmission Date: 20140127
  Serious: Yes (Other)
  Sender: FDA-Public Use
  Company Number: AUR-APL-2013-02561

PATIENT
  Age: 59 Year
  Sex: Male

DRUGS (1)
  1. CIPROFLOXACIN (CIPROFLOXACIN) [Suspect]
     Indication: UPPER RESPIRATORY TRACT INFECTION

REACTIONS (8)
  - Prothrombin time prolonged [None]
  - Activated partial thromboplastin time prolonged [None]
  - Muscle haemorrhage [None]
  - Gastrointestinal haemorrhage [None]
  - Drug ineffective [None]
  - Staphylococcal sepsis [None]
  - Respiratory failure [None]
  - Factor X deficiency [None]
